FAERS Safety Report 8617953-8 (Version None)
Quarter: 2012Q3

REPORT INFORMATION
  Report Type: 
  Country: None (occurrence: None)
  Receive Date: 20120824
  Receipt Date: 20120312
  Transmission Date: 20120928
  Serious: No
  Sender: FDA-Public Use
  Company Number: US-ASTRAZENECA-2012SE17044

PATIENT
  Age: 42 Year
  Sex: Male

DRUGS (3)
  1. SYMBICORT [Suspect]
     Route: 055
  2. SEROQUEL XR [Suspect]
     Route: 048
  3. PROVENTIL [Concomitant]

REACTIONS (1)
  - RESPIRATORY DISORDER [None]
